FAERS Safety Report 6576401-2 (Version None)
Quarter: 2010Q1

REPORT INFORMATION
  Report Type: 
  Country: None (occurrence: None)
  Receive Date: 20100210
  Receipt Date: 20100105
  Transmission Date: 20100710
  Serious: Yes (Death)
  Sender: FDA-Public Use
  Company Number: US-TYCO HEALTHCARE/MALLINCKRODT-T201000204

PATIENT
  Age: 33 Year
  Sex: Male

DRUGS (4)
  1. OXYCODONE HCL [Suspect]
     Route: 048
  2. ACETAMINOPHEN AND HYDROCODONE BITARTRATE [Suspect]
     Dosage: UNK
     Route: 048
  3. BENZODIAZEPINE [Suspect]
     Route: 048
  4. MEPROBAMATE [Suspect]
     Route: 048

REACTIONS (1)
  - DEATH [None]
